FAERS Safety Report 16314543 (Version 1)
Quarter: 2019Q2

REPORT INFORMATION
  Report Type: Spontaneous
  Country: US (occurrence: US)
  Receive Date: 20190410
  Receipt Date: 20190410
  Transmission Date: 20190711
  Serious: Yes (Hospitalization)
  Sender: FDA-Public Use
  Company Number: None

PATIENT
  Age: 88 Year
  Sex: Male

DRUGS (16)
  1. PROBIOTIC [Concomitant]
     Active Substance: PROBIOTICS NOS
  2. FIBER [Concomitant]
     Active Substance: PSYLLIUM HUSK
  3. FLUTICASONE. [Suspect]
     Active Substance: FLUTICASONE
  4. TIMOLOL. [Concomitant]
     Active Substance: TIMOLOL
  5. POLYETHYLENE GLYCOL [Concomitant]
     Active Substance: POLYETHYLENE GLYCOLS
  6. RANITIDINE. [Concomitant]
     Active Substance: RANITIDINE
  7. CARVEDILOL. [Concomitant]
     Active Substance: CARVEDILOL
  8. KLOR-CON [Concomitant]
     Active Substance: POTASSIUM CHLORIDE
  9. TAMSULOSIN [Concomitant]
     Active Substance: TAMSULOSIN
  10. CRANBERRY. [Concomitant]
     Active Substance: CRANBERRY
  11. CAPECITABINE 500MG [Suspect]
     Active Substance: CAPECITABINE
     Indication: RECTAL CANCER
     Route: 048
     Dates: start: 20190313
  12. FUROSEMIDE. [Concomitant]
     Active Substance: FUROSEMIDE
  13. MULTIVITAMIN [Concomitant]
     Active Substance: VITAMINS
  14. DELZICOL [Concomitant]
     Active Substance: MESALAMINE
  15. CALCIUM [Concomitant]
     Active Substance: CALCIUM
  16. LISINOPRIL. [Concomitant]
     Active Substance: LISINOPRIL

REACTIONS (1)
  - Cerebrovascular accident [None]
